FAERS Safety Report 8331726-5 (Version None)
Quarter: 2012Q2

REPORT INFORMATION
  Report Type: 
  Country: None (occurrence: None)
  Receive Date: 20120502
  Receipt Date: 20110815
  Transmission Date: 20120825
  Serious: No
  Sender: FDA-Public Use
  Company Number: US-ASTRAZENECA-2011SE48670

PATIENT
  Age: 55 Year
  Sex: Female
  Weight: 90.7 kg

DRUGS (14)
  1. HUMIRA [Suspect]
     Dosage: 80 MG, 2ND LOADING DOSE, ONCE
     Route: 058
     Dates: start: 20110401, end: 20110401
  2. ENTOCORT EC [Suspect]
     Dosage: AS REQUIRED
     Route: 048
     Dates: start: 20110301
  3. ENTOCORT EC [Suspect]
     Dosage: CONSISTANTLY
     Route: 048
     Dates: start: 20110601
  4. ENTOCORT EC [Suspect]
     Dosage: CONSISTANTLY
     Route: 048
     Dates: start: 20110601
  5. HUMIRA [Suspect]
     Route: 058
     Dates: start: 20110401
  6. HUMIRA [Suspect]
     Dosage: 160 MG, 1ST LOADING DOSE
     Route: 058
     Dates: start: 20110301, end: 20110301
  7. CITALOPRAM HYDROBROKMIDE [Concomitant]
  8. ENTOCORT EC [Suspect]
     Indication: CROHN'S DISEASE
     Route: 048
     Dates: end: 20110301
  9. LANSOPRAZOLE [Concomitant]
     Indication: GASTROOESOPHAGEAL REFLUX DISEASE
  10. ESZOPICLONE [Concomitant]
     Indication: INSOMNIA
  11. ENTOCORT EC [Suspect]
     Indication: DIARRHOEA
     Route: 048
     Dates: end: 20110301
  12. HUMIRA [Suspect]
     Indication: CROHN'S DISEASE
     Dosage: 40 MG/0.8 ML, TRAIL W/METHOTREXATE, ONE IN 2 WEEKS
     Route: 058
     Dates: start: 20060101, end: 20060101
  13. MULTI-VITAMIN [Suspect]
     Indication: SUPPLEMENTATION THERAPY
     Dosage: ONE IN ONE DAY
     Route: 048
     Dates: start: 20110601
  14. ENTOCORT EC [Suspect]
     Dosage: AS REQUIRED
     Route: 048
     Dates: start: 20110301

REACTIONS (10)
  - CONSTIPATION [None]
  - SKIN DISORDER [None]
  - DRUG INEFFECTIVE [None]
  - ARTHROPOD BITE [None]
  - DRY SKIN [None]
  - SKIN EXFOLIATION [None]
  - DIARRHOEA [None]
  - HAEMORRHAGE [None]
  - URTICARIA [None]
  - PRURITUS [None]
